FAERS Safety Report 11894343 (Version 3)
Quarter: 2016Q1

REPORT INFORMATION
  Report Type: Spontaneous
  Country: BR (occurrence: BR)
  Receive Date: 20160107
  Receipt Date: 20160131
  Transmission Date: 20160526
  Serious: Yes (Other)
  Sender: FDA-Public Use
  Company Number: BR-AMGEN-BRASP2015131899

PATIENT
  Age: 51 Year
  Sex: Female
  Weight: 66 kg

DRUGS (3)
  1. ENBREL [Suspect]
     Active Substance: ETANERCEPT
     Indication: ANKYLOSING SPONDYLITIS
     Dosage: 50 MG, ONCE WEEKLY
     Route: 065
     Dates: start: 201510
  2. ENBREL [Suspect]
     Active Substance: ETANERCEPT
     Indication: SPONDYLITIS
     Dosage: 50 MG, ONCE WEEKLY
     Route: 058
     Dates: start: 20151020
  3. ISONIAZID. [Concomitant]
     Active Substance: ISONIAZID
     Dosage: 100 MG, UNK

REACTIONS (15)
  - Pain in extremity [Unknown]
  - Urinary tract pain [Recovered/Resolved]
  - Anxiety [Unknown]
  - Nasopharyngitis [Unknown]
  - Injection site pruritus [Unknown]
  - Injection site erythema [Unknown]
  - Injection site induration [Unknown]
  - Back pain [Unknown]
  - Musculoskeletal stiffness [Unknown]
  - Joint crepitation [Unknown]
  - Renal colic [Unknown]
  - Sneezing [Unknown]
  - Nephrolithiasis [Unknown]
  - Sleep disorder due to general medical condition, insomnia type [Unknown]
  - Injection site irritation [Unknown]

NARRATIVE: CASE EVENT DATE: 2015
